FAERS Safety Report 8230921-3 (Version None)
Quarter: 2012Q1

REPORT INFORMATION
  Report Type: 
  Country: None (occurrence: None)
  Receive Date: 20120320
  Receipt Date: 20120306
  Transmission Date: 20120608
  Serious: Yes (Hospitalization)
  Sender: FDA-Public Use
  Company Number: JPI-P-020237

PATIENT
  Age: 86 Year
  Sex: Female

DRUGS (2)
  1. XYREM [Suspect]
     Indication: CATAPLEXY
     Dosage: 4.5 GM (2.25 GM,2 IN 1 D),ORAL ,ORAL, 6 GM (3 GM,2 IN 1 D),ORAL
     Route: 048
     Dates: start: 20111125
  2. XYREM [Suspect]
     Indication: CATAPLEXY
     Dosage: 4.5 GM (2.25 GM,2 IN 1 D),ORAL ,ORAL, 6 GM (3 GM,2 IN 1 D),ORAL
     Route: 048
     Dates: start: 20030708

REACTIONS (22)
  - JOINT INJURY [None]
  - DRY MOUTH [None]
  - ABDOMINAL DISCOMFORT [None]
  - INCONTINENCE [None]
  - ARTHRALGIA [None]
  - HEART RATE IRREGULAR [None]
  - DRUG INEFFECTIVE [None]
  - VISION BLURRED [None]
  - GAIT DISTURBANCE [None]
  - SLEEP APNOEA SYNDROME [None]
  - HALLUCINATION [None]
  - DIZZINESS [None]
  - DIVERTICULITIS [None]
  - VOMITING [None]
  - PALPITATIONS [None]
  - ASTHENIA [None]
  - FALL [None]
  - TREMOR [None]
  - POLLAKIURIA [None]
  - CONSTIPATION [None]
  - JOINT SWELLING [None]
  - DIARRHOEA [None]
